FAERS Safety Report 10215939 (Version 1)
Quarter: 2014Q2

REPORT INFORMATION
  Report Type: Report from Study
  Country: US (occurrence: US)
  Receive Date: 20140604
  Receipt Date: 20140604
  Transmission Date: 20141212
  Serious: Yes (Other)
  Sender: FDA-Public Use
  Company Number: US-ROCHE-1362061

PATIENT
  Age: 90 Year
  Sex: Female

DRUGS (7)
  1. LUCENTIS [Suspect]
     Indication: AGE-RELATED MACULAR DEGENERATION
     Route: 050
  2. LUCENTIS [Suspect]
     Indication: DIABETIC RETINOPATHY
     Dosage: OS
     Route: 050
     Dates: end: 20120913
  3. LUCENTIS [Suspect]
     Indication: DIABETIC RETINOPATHY
  4. AVASTIN [Suspect]
     Indication: AGE-RELATED MACULAR DEGENERATION
     Dosage: OS
     Route: 050
     Dates: end: 20121128
  5. AVASTIN [Suspect]
     Dosage: OD
     Route: 050
  6. VANCOMYCIN [Concomitant]
     Dosage: OD
     Route: 050
     Dates: start: 20130110, end: 20130110
  7. CEFTAZIDIME [Concomitant]
     Dosage: OD
     Route: 050
     Dates: start: 20130110, end: 20130110

REACTIONS (13)
  - Endophthalmitis [Unknown]
  - Uveitis [Unknown]
  - Eye inflammation [Unknown]
  - Cystoid macular oedema [Unknown]
  - Vitritis [Unknown]
  - Anterior chamber inflammation [Unknown]
  - Vision blurred [Unknown]
  - Vitreous detachment [Unknown]
  - Detachment of retinal pigment epithelium [Unknown]
  - Retinal haemorrhage [Unknown]
  - Off label use [Unknown]
  - Eye pain [Unknown]
  - Visual acuity reduced [Unknown]
